FAERS Safety Report 20473464 (Version 1)
Quarter: 2022Q1

REPORT INFORMATION
  Report Type: Spontaneous
  Country: US (occurrence: US)
  Receive Date: 20220215
  Receipt Date: 20220215
  Transmission Date: 20220423
  Serious: No
  Sender: FDA-Public Use
  Company Number: US-ALLERGAN-2126537US

PATIENT
  Age: 58 Year
  Sex: Female

DRUGS (1)
  1. FABIOR [Suspect]
     Active Substance: TAZAROTENE
     Indication: Product used for unknown indication
     Dosage: MASSAGE ONTO SKIN NIGHTLY BEFORE BED
     Route: 061

REACTIONS (1)
  - Dry skin [Recovered/Resolved]
